FAERS Safety Report 13306955 (Version 1)
Quarter: 2017Q1

REPORT INFORMATION
  Report Type: Spontaneous
  Country: US (occurrence: US)
  Receive Date: 20170308
  Receipt Date: 20170308
  Transmission Date: 20170428
  Serious: No
  Sender: FDA-Public Use
  Company Number: US-AKORN PHARMACEUTICALS-2016AKN00599

PATIENT
  Sex: Male
  Weight: 86.17 kg

DRUGS (2)
  1. MYORISAN [Suspect]
     Active Substance: ISOTRETINOIN
     Indication: ACNE CYSTIC
     Dosage: 30 MG, 2X/DAY
     Dates: start: 20160624, end: 2016
  2. CREATINE SUPPLEMENT [Suspect]
     Active Substance: DIETARY SUPPLEMENT
     Dosage: UNK
     Dates: end: 2016

REACTIONS (1)
  - Blood creatine phosphokinase [Unknown]

NARRATIVE: CASE EVENT DATE: 2016
